FAERS Safety Report 4734335-X (Version None)
Quarter: 2005Q3

REPORT INFORMATION
  Report Type: 
  Country: None (occurrence: None)
  Receive Date: 20050804
  Receipt Date: 20050727
  Transmission Date: 20060218
  Serious: Yes (Hospitalization)
  Sender: FDA-Public Use
  Company Number: AU-BOEHRINGER INGELHEIM PHARMACEUTICALS, INC.-2005-BP-12771AU

PATIENT
  Age: 82 Year
  Sex: Female

DRUGS (1)
  1. MOBIC [Suspect]

REACTIONS (2)
  - HAEMOGLOBIN DECREASED [None]
  - HAEMORRHAGE [None]
